FAERS Safety Report 5392916-7 (Version None)
Quarter: 2007Q3

REPORT INFORMATION
  Report Type: 
  Country: None (occurrence: None)
  Receive Date: 20070718
  Receipt Date: 20070709
  Transmission Date: 20080115
  Serious: Yes (Other)
  Sender: FDA-Public Use
  Company Number: 062-C5013-07070173

PATIENT
  Age: 55 Year
  Sex: Female
  Weight: 76 kg

DRUGS (2)
  1. CC-5013 (LENALIDOMIDE) (CAPSULES) [Suspect]
     Indication: 5Q-SYNDROME
     Dosage: 10 MG, ORAL; 5 MG, DAILY, ORAL
     Route: 048
     Dates: start: 20070309, end: 20070418
  2. CC-5013 (LENALIDOMIDE) (CAPSULES) [Suspect]
     Indication: 5Q-SYNDROME
     Dosage: 10 MG, ORAL; 5 MG, DAILY, ORAL
     Route: 048
     Dates: start: 20070504

REACTIONS (5)
  - ALANINE AMINOTRANSFERASE INCREASED [None]
  - ASPARTATE AMINOTRANSFERASE INCREASED [None]
  - BLOOD ALKALINE PHOSPHATASE INCREASED [None]
  - BLOOD LACTATE DEHYDROGENASE INCREASED [None]
  - GAMMA-GLUTAMYLTRANSFERASE INCREASED [None]
